FAERS Safety Report 24889468 (Version 1)
Quarter: 2025Q1

REPORT INFORMATION
  Report Type: Spontaneous
  Country: US (occurrence: US)
  Receive Date: 20250127
  Receipt Date: 20250127
  Transmission Date: 20250409
  Serious: Yes (Other)
  Sender: PFIZER
  Company Number: US-PFIZER INC-202500015141

PATIENT
  Age: 59 Year
  Sex: Female

DRUGS (6)
  1. TUKYSA [Suspect]
     Active Substance: TUCATINIB
     Indication: Breast cancer stage IV
     Dates: start: 2024
  2. TUKYSA [Suspect]
     Active Substance: TUCATINIB
     Indication: Breast cancer metastatic
  3. CAPECITABINE [Suspect]
     Active Substance: CAPECITABINE
     Indication: Breast cancer stage IV
  4. CAPECITABINE [Suspect]
     Active Substance: CAPECITABINE
     Indication: Breast cancer metastatic
  5. HERCEPTIN [Concomitant]
     Active Substance: TRASTUZUMAB
  6. TAXOL [Concomitant]
     Active Substance: PACLITAXEL

REACTIONS (5)
  - Gene mutation [Unknown]
  - Diarrhoea [Unknown]
  - Dehydration [Unknown]
  - Liver disorder [Unknown]
  - Renal disorder [Unknown]
